FAERS Safety Report 14604696 (Version 2)
Quarter: 2018Q1

REPORT INFORMATION
  Report Type: Spontaneous
  Country: JP (occurrence: JP)
  Receive Date: 20180306
  Receipt Date: 20180309
  Transmission Date: 20180509
  Serious: Yes (Hospitalization)
  Sender: FDA-Public Use
  Company Number: JP-BAYER-2018-017830

PATIENT
  Age: 11 Year

DRUGS (2)
  1. CILOSTAZOL. [Concomitant]
     Active Substance: CILOSTAZOL
  2. BAYASPIRIN 100 MG [Suspect]
     Active Substance: ASPIRIN
     Indication: MOYAMOYA DISEASE
     Dosage: DAILY DOSE 100 MG
     Route: 048

REACTIONS (7)
  - Product use in unapproved indication [None]
  - Vomiting [Recovered/Resolved]
  - Aspartate aminotransferase increased [Recovered/Resolved]
  - Alanine aminotransferase increased [Recovered/Resolved]
  - Off label use [None]
  - Hepatitis A [Recovered/Resolved]
  - Diarrhoea [Recovered/Resolved]

NARRATIVE: CASE EVENT DATE: 201801
